FAERS Safety Report 7805431 (Version 7)
Quarter: 2012Q4

REPORT INFORMATION
  Report Type: 
  Country: DK (occurrence: DK)
  Receive Date: 20110209
  Receipt Date: 20121127
  Transmission Date: 20130627
  Serious: Yes (Death)
  Sender: FDA-Public Use
  Company Number: DK-JNJFOC-20110201293

PATIENT
  Sex: Male
  Weight: 87 kg

DRUGS (4)
  1. CONCERTA [Suspect]
     Indication: RESTLESSNESS
     Dosage: stop date: SEP-2010
     Route: 048
     Dates: start: 20100910
  2. CONCERTA [Suspect]
     Indication: RESTLESSNESS
     Dosage: CONCERTA 18 mg Depottabletter
     Route: 048
     Dates: start: 20110107
  3. CONCERTA [Suspect]
     Indication: ATTENTION DEFICIT/HYPERACTIVITY DISORDER
     Dosage: CONCERTA 18 mg Depottabletter
     Route: 048
     Dates: start: 20110107
  4. CONCERTA [Suspect]
     Indication: ATTENTION DEFICIT/HYPERACTIVITY DISORDER
     Dosage: stop date: SEP-2010
     Route: 048
     Dates: start: 20100910

REACTIONS (1)
  - Cardiac disorder [Fatal]
